FAERS Safety Report 18753783 (Version 9)
Quarter: 2022Q3

REPORT INFORMATION
  Report Type: Report from Study
  Country: PA (occurrence: PA)
  Receive Date: 20210118
  Receipt Date: 20220716
  Transmission Date: 20221027
  Serious: Yes (Hospitalization, Other)
  Sender: FDA-Public Use
  Company Number: PA-ABBVIE-21K-125-3731608-00

PATIENT
  Age: 48 Year
  Sex: Female
  Weight: 59 kg

DRUGS (9)
  1. HUMIRA [Suspect]
     Active Substance: ADALIMUMAB
     Indication: Rheumatoid arthritis
     Route: 058
     Dates: start: 20170726, end: 20200715
  2. HUMIRA [Suspect]
     Active Substance: ADALIMUMAB
     Indication: Rheumatoid arthritis
     Route: 058
     Dates: start: 20170726, end: 20220415
  3. CIPROFLOXACIN [Suspect]
     Active Substance: CIPROFLOXACIN
     Indication: Product used for unknown indication
     Route: 065
     Dates: start: 2021
  4. IODINE [Suspect]
     Active Substance: IODINE
     Indication: Product used for unknown indication
     Route: 065
     Dates: start: 20211029
  5. ADALIMUMAB [Suspect]
     Active Substance: ADALIMUMAB
     Indication: Rheumatoid arthritis
     Route: 065
     Dates: end: 20220530
  6. FOLIC ACID [Concomitant]
     Active Substance: FOLIC ACID
     Indication: Product used for unknown indication
  7. METHOTREXATE [Concomitant]
     Active Substance: METHOTREXATE
     Indication: Product used for unknown indication
  8. LEVOTHYROXINE SODIUM [Concomitant]
     Active Substance: LEVOTHYROXINE SODIUM
     Indication: Product used for unknown indication
  9. LEVOTHYROXINE [Concomitant]
     Active Substance: LEVOTHYROXINE
     Indication: Product used for unknown indication
     Route: 048

REACTIONS (62)
  - Visual impairment [Recovering/Resolving]
  - Thyroid cancer [Recovering/Resolving]
  - Dizziness [Recovered/Resolved]
  - Weight increased [Recovered/Resolved]
  - Gait disturbance [Recovered/Resolved]
  - Gait disturbance [Not Recovered/Not Resolved]
  - Blood calcium decreased [Recovering/Resolving]
  - Blood potassium decreased [Unknown]
  - Dysgeusia [Recovering/Resolving]
  - Pain in extremity [Recovering/Resolving]
  - Hypoaesthesia [Recovering/Resolving]
  - Back pain [Recovering/Resolving]
  - Chest pain [Recovering/Resolving]
  - Hypertension [Recovering/Resolving]
  - Dyspnoea [Not Recovered/Not Resolved]
  - Peripheral swelling [Recovering/Resolving]
  - Abdominal pain [Not Recovered/Not Resolved]
  - Furuncle [Recovering/Resolving]
  - Erythema [Recovering/Resolving]
  - Headache [Recovered/Resolved]
  - Rheumatoid arthritis [Recovering/Resolving]
  - Malaise [Unknown]
  - Asthenia [Unknown]
  - Spinal pain [Not Recovered/Not Resolved]
  - Ear disorder [Unknown]
  - Dizziness [Recovered/Resolved]
  - Collagen disorder [Not Recovered/Not Resolved]
  - Blood oestrogen decreased [Recovering/Resolving]
  - Urinary tract infection [Not Recovered/Not Resolved]
  - Inflammation [Recovered/Resolved]
  - Dysuria [Not Recovered/Not Resolved]
  - Vomiting [Not Recovered/Not Resolved]
  - Headache [Recovered/Resolved]
  - Dizziness [Not Recovered/Not Resolved]
  - Urinary retention [Not Recovered/Not Resolved]
  - Vein disorder [Not Recovered/Not Resolved]
  - Sleep disorder [Not Recovered/Not Resolved]
  - Hormone level abnormal [Not Recovered/Not Resolved]
  - Menopause [Not Recovered/Not Resolved]
  - Abdominal distension [Recovering/Resolving]
  - Dysstasia [Not Recovered/Not Resolved]
  - Urinary retention [Not Recovered/Not Resolved]
  - Fatigue [Recovering/Resolving]
  - Feeling cold [Recovering/Resolving]
  - Muscle spasms [Recovering/Resolving]
  - Limb discomfort [Recovering/Resolving]
  - Blood zinc decreased [Recovering/Resolving]
  - Blood magnesium decreased [Recovering/Resolving]
  - Blood test abnormal [Recovering/Resolving]
  - Keloid scar [Unknown]
  - Lymph nodes scan abnormal [Not Recovered/Not Resolved]
  - Alopecia [Not Recovered/Not Resolved]
  - Acne [Recovering/Resolving]
  - Onychoclasis [Not Recovered/Not Resolved]
  - Dry skin [Not Recovered/Not Resolved]
  - Skin wrinkling [Not Recovered/Not Resolved]
  - Ear pain [Recovered/Resolved]
  - Headache [Recovered/Resolved]
  - Pyrexia [Recovered/Resolved]
  - Bone disorder [Recovering/Resolving]
  - Joint range of motion decreased [Recovered/Resolved]
  - Exostosis [Recovered/Resolved]

NARRATIVE: CASE EVENT DATE: 20200101
